FAERS Safety Report 17191402 (Version 3)
Quarter: 2020Q3

REPORT INFORMATION
  Report Type: Report from Study
  Country: US (occurrence: US)
  Receive Date: 20191223
  Receipt Date: 20200906
  Transmission Date: 20201102
  Serious: Yes (Hospitalization)
  Sender: FDA-Public Use
  Company Number: PHHO2019US009743

PATIENT
  Sex: Male
  Weight: 12.1 kg

DRUGS (2)
  1. MEKINIST [Suspect]
     Active Substance: TRAMETINIB DIMETHYL SULFOXIDE
     Dosage: UNK
     Route: 048
     Dates: start: 20200707, end: 20200803
  2. MEKINIST [Suspect]
     Active Substance: TRAMETINIB DIMETHYL SULFOXIDE
     Indication: JUVENILE CHRONIC MYELOMONOCYTIC LEUKAEMIA
     Dosage: 0.032 MG/KG, QD
     Route: 048
     Dates: start: 20190830, end: 20190926

REACTIONS (3)
  - Acute respiratory failure [Not Recovered/Not Resolved]
  - Sepsis [Unknown]
  - Stridor [Not Recovered/Not Resolved]

NARRATIVE: CASE EVENT DATE: 20190927
